FAERS Safety Report 19128937 (Version 7)
Quarter: 2022Q4

REPORT INFORMATION
  Report Type: Report from Study
  Country: US (occurrence: US)
  Receive Date: 20210413
  Receipt Date: 20221010
  Transmission Date: 20230112
  Serious: Yes (Hospitalization, Other)
  Sender: FDA-Public Use
  Company Number: US-TAKEDA-2021TUS021674

PATIENT
  Age: 66 Year
  Sex: Male
  Weight: 88 kg

DRUGS (89)
  1. HUMAN IMMUNOGLOBULIN G [Suspect]
     Active Substance: HUMAN IMMUNOGLOBULIN G
     Indication: Hypergammaglobulinaemia
     Dosage: 40 GRAM, 1/WEEK
     Route: 042
     Dates: start: 20190814
  2. HUMAN IMMUNOGLOBULIN G [Suspect]
     Active Substance: HUMAN IMMUNOGLOBULIN G
     Indication: Hypergammaglobulinaemia
     Dosage: 40 GRAM, 1/WEEK
     Route: 042
     Dates: start: 20190814
  3. HUMAN IMMUNOGLOBULIN G [Suspect]
     Active Substance: HUMAN IMMUNOGLOBULIN G
     Indication: Chronic inflammatory demyelinating polyradiculoneuropathy
     Dosage: 35 GRAM, 1/WEEK
     Route: 042
     Dates: start: 20190814
  4. HUMAN IMMUNOGLOBULIN G [Suspect]
     Active Substance: HUMAN IMMUNOGLOBULIN G
     Indication: Chronic inflammatory demyelinating polyradiculoneuropathy
     Dosage: 35 GRAM, 1/WEEK
     Route: 042
     Dates: start: 20190814
  5. HUMAN IMMUNOGLOBULIN G [Suspect]
     Active Substance: HUMAN IMMUNOGLOBULIN G
     Indication: Selective IgG subclass deficiency
     Dosage: 40 GRAM, 1/WEEK
     Route: 042
     Dates: start: 20201222
  6. HUMAN IMMUNOGLOBULIN G [Suspect]
     Active Substance: HUMAN IMMUNOGLOBULIN G
     Indication: Selective IgG subclass deficiency
     Dosage: 40 GRAM, 1/WEEK
     Route: 042
     Dates: start: 20201222
  7. HUMAN IMMUNOGLOBULIN G [Suspect]
     Active Substance: HUMAN IMMUNOGLOBULIN G
     Indication: HIV infection
     Dosage: 35 GRAM, 1/WEEK
     Route: 042
     Dates: start: 20201222
  8. HUMAN IMMUNOGLOBULIN G [Suspect]
     Active Substance: HUMAN IMMUNOGLOBULIN G
     Indication: HIV infection
     Dosage: 35 GRAM, 1/WEEK
     Route: 042
     Dates: start: 20201222
  9. HUMAN IMMUNOGLOBULIN G [Suspect]
     Active Substance: HUMAN IMMUNOGLOBULIN G
     Indication: Amino acid metabolism disorder
  10. HUMAN IMMUNOGLOBULIN G [Suspect]
     Active Substance: HUMAN IMMUNOGLOBULIN G
     Indication: Amino acid metabolism disorder
  11. LEVAQUIN [Suspect]
     Active Substance: LEVOFLOXACIN
     Indication: Product used for unknown indication
     Dosage: UNK
     Route: 065
  12. SODIUM CHLORIDE [Concomitant]
     Active Substance: SODIUM CHLORIDE
     Indication: Product used for unknown indication
     Route: 065
  13. ACETAMINOPHEN [Concomitant]
     Active Substance: ACETAMINOPHEN
     Route: 065
  14. DIPHENHYDRAMINE [Concomitant]
     Active Substance: DIPHENHYDRAMINE
     Route: 065
  15. HEPARIN [Concomitant]
     Active Substance: HEPARIN SODIUM
     Route: 065
  16. LIDOCAINE [Concomitant]
     Active Substance: LIDOCAINE
     Route: 065
  17. SODIUM CHLORIDE [Concomitant]
     Active Substance: SODIUM CHLORIDE
     Route: 065
  18. SODIUM CHLORIDE [Concomitant]
     Active Substance: SODIUM CHLORIDE
     Route: 065
  19. EPINEPHRINE [Concomitant]
     Active Substance: EPINEPHRINE
     Route: 065
  20. Lmx [Concomitant]
     Route: 065
  21. CYMBALTA [Concomitant]
     Active Substance: DULOXETINE HYDROCHLORIDE
     Route: 065
  22. HUMALOG [Concomitant]
     Active Substance: INSULIN LISPRO
     Route: 065
  23. HUMULIN N [Concomitant]
     Active Substance: INSULIN HUMAN
     Route: 065
  24. SINGULAIR [Concomitant]
     Active Substance: MONTELUKAST SODIUM
     Route: 065
  25. CREON [Concomitant]
     Active Substance: PANCRELIPASE AMYLASE\PANCRELIPASE LIPASE\PANCRELIPASE PROTEASE
     Route: 065
  26. RESTASIS [Concomitant]
     Active Substance: CYCLOSPORINE
     Route: 065
  27. ANDROGEL [Concomitant]
     Active Substance: TESTOSTERONE
     Route: 065
  28. RETACRIT [Concomitant]
     Active Substance: EPOETIN ALFA-EPBX
     Route: 065
  29. DIOVAN [Concomitant]
     Active Substance: VALSARTAN
     Route: 065
  30. NORVIR [Concomitant]
     Active Substance: RITONAVIR
     Route: 065
  31. PROMACTA [Concomitant]
     Active Substance: ELTROMBOPAG OLAMINE
     Route: 065
  32. XIIDRA [Concomitant]
     Active Substance: LIFITEGRAST
     Route: 065
  33. CLARINEX [Concomitant]
     Active Substance: DESLORATADINE
     Route: 065
  34. NASONEX [Concomitant]
     Active Substance: MOMETASONE FUROATE
     Route: 065
  35. REXULTI [Concomitant]
     Active Substance: BREXPIPRAZOLE
     Route: 065
  36. AMLODIPINE [Concomitant]
     Active Substance: AMLODIPINE BESYLATE
     Route: 065
  37. LOPROX [Concomitant]
     Active Substance: CICLOPIROX\CICLOPIROX OLAMINE
     Route: 065
  38. SEROSTIM [Concomitant]
     Active Substance: SOMATROPIN
     Route: 065
  39. SELZENTRY [Concomitant]
     Active Substance: MARAVIROC
     Route: 065
  40. PROVIGIL [Concomitant]
     Active Substance: MODAFINIL
     Route: 065
  41. TIVICAY [Concomitant]
     Active Substance: DOLUTEGRAVIR SODIUM
     Route: 065
  42. LEVOCARNITINE [Concomitant]
     Active Substance: LEVOCARNITINE
     Route: 065
  43. OXAZEPAM [Concomitant]
     Active Substance: OXAZEPAM
     Route: 065
  44. EUCRISA [Concomitant]
     Active Substance: CRISABOROLE
     Route: 065
  45. PREZISTA [Concomitant]
     Active Substance: DARUNAVIR ETHANOLATE
     Route: 065
  46. CALCIUM CHLORIDE\SODIUM CHLORIDE\SODIUM PHOSPHATE, DIBASIC, ANHYDROUS\ [Concomitant]
     Active Substance: CALCIUM CHLORIDE\SODIUM CHLORIDE\SODIUM PHOSPHATE, DIBASIC, ANHYDROUS\SODIUM PHOSPHATE, MONOBASIC, A
     Route: 065
  47. EMTRIVA [Concomitant]
     Active Substance: EMTRICITABINE
     Route: 065
  48. ENTYVIO [Concomitant]
     Active Substance: VEDOLIZUMAB
     Route: 065
  49. FLUDROCORTISONE ACETATE [Concomitant]
     Active Substance: FLUDROCORTISONE ACETATE
     Route: 065
  50. PREVIDENT [Concomitant]
     Active Substance: SODIUM FLUORIDE
     Route: 065
  51. NYSTATIN\TRIAMCINOLONE [Concomitant]
     Active Substance: NYSTATIN\TRIAMCINOLONE
     Route: 065
  52. VALTREX [Concomitant]
     Active Substance: VALACYCLOVIR HYDROCHLORIDE
     Route: 065
  53. GRANIX [Concomitant]
     Active Substance: TBO-FILGRASTIM
     Route: 065
  54. LOVAZA [Concomitant]
     Active Substance: OMEGA-3-ACID ETHYL ESTERS
     Route: 065
  55. TETRIX [Concomitant]
     Route: 065
  56. VASOTEC [Concomitant]
     Active Substance: ENALAPRIL MALEATE
     Route: 065
  57. JUBLIA [Concomitant]
     Active Substance: EFINACONAZOLE
     Dosage: UNK
     Route: 065
  58. GABAPENTIN [Concomitant]
     Active Substance: GABAPENTIN
     Route: 065
  59. CRESTOR [Concomitant]
     Active Substance: ROSUVASTATIN CALCIUM
     Dosage: UNK
     Route: 065
  60. HYDROCHLOROTHIAZIDE [Concomitant]
     Active Substance: HYDROCHLOROTHIAZIDE
     Route: 065
  61. POTASSIUM PHOSPHATE, MONOBASIC [Concomitant]
     Active Substance: POTASSIUM PHOSPHATE, MONOBASIC
     Route: 065
  62. AZELASTINE HYDROCHLORIDE\FLUTICASONE PROPIONATE [Concomitant]
     Active Substance: AZELASTINE HYDROCHLORIDE\FLUTICASONE PROPIONATE
     Route: 065
  63. NEVIRAPINE [Concomitant]
     Active Substance: NEVIRAPINE
     Route: 065
  64. METFORMIN [Concomitant]
     Active Substance: METFORMIN HYDROCHLORIDE
     Route: 065
  65. NIZORAL A-D [Concomitant]
     Active Substance: KETOCONAZOLE
     Route: 065
  66. MYRBETRIQ [Concomitant]
     Active Substance: MIRABEGRON
     Route: 065
  67. MEMANTINE [Concomitant]
     Active Substance: MEMANTINE
     Route: 065
  68. XIFAXAN [Concomitant]
     Active Substance: RIFAXIMIN
     Route: 065
  69. LEVOTHYROXINE [Concomitant]
     Active Substance: LEVOTHYROXINE
     Route: 065
  70. AMPHETAMINE SULFATE [Concomitant]
     Active Substance: AMPHETAMINE SULFATE
     Route: 065
  71. ASPIRIN [Concomitant]
     Active Substance: ASPIRIN
     Route: 065
  72. OMEPRAZOLE [Concomitant]
     Active Substance: OMEPRAZOLE
     Route: 065
  73. TAMSULOSIN [Concomitant]
     Active Substance: TAMSULOSIN
     Route: 065
  74. KERYDIN [Concomitant]
     Active Substance: TAVABOROLE
     Route: 065
  75. SILDENAFIL [Concomitant]
     Active Substance: SILDENAFIL
     Route: 065
  76. GLIMEPIRIDE [Concomitant]
     Active Substance: GLIMEPIRIDE
     Route: 065
  77. FINASTERIDE [Concomitant]
     Active Substance: FINASTERIDE
     Route: 065
  78. CALCITRIOL [Concomitant]
     Active Substance: CALCITRIOL
     Route: 065
  79. ERYTHROMYCIN [Concomitant]
     Active Substance: ERYTHROMYCIN
     Route: 065
  80. MUPIROCIN [Concomitant]
     Active Substance: MUPIROCIN
     Route: 065
  81. MAGNESIUM OXIDE [Concomitant]
     Active Substance: MAGNESIUM OXIDE
     Route: 065
  82. DIGITEK [Concomitant]
     Active Substance: DIGOXIN
     Route: 065
  83. SILDENAFIL CITRATE [Concomitant]
     Active Substance: SILDENAFIL CITRATE
     Route: 065
  84. SEBUDERM [Concomitant]
     Route: 065
  85. ATENOLOL [Concomitant]
     Active Substance: ATENOLOL
     Route: 065
  86. MYTESI [Concomitant]
     Active Substance: CROFELEMER
     Route: 065
  87. LANTUS [Concomitant]
     Active Substance: INSULIN GLARGINE
     Route: 065
  88. AMLODIPINE BESYLATE [Concomitant]
     Active Substance: AMLODIPINE BESYLATE
  89. GAMMAGARD [Concomitant]
     Active Substance: HUMAN IMMUNOGLOBULIN G

REACTIONS (16)
  - Renal impairment [Unknown]
  - Auditory nerve disorder [Unknown]
  - Dehydration [Unknown]
  - Blood pressure decreased [Unknown]
  - Renal disorder [Unknown]
  - Fall [Unknown]
  - Blood glucose decreased [Unknown]
  - Gait disturbance [Unknown]
  - Drug hypersensitivity [Unknown]
  - Contusion [Unknown]
  - Infusion site extravasation [Unknown]
  - Hypertension [Unknown]
  - Dizziness [Unknown]
  - Product administration error [Unknown]
  - Product dose omission issue [Unknown]
  - Product use in unapproved indication [Unknown]

NARRATIVE: CASE EVENT DATE: 20220811
